FAERS Safety Report 14832527 (Version 3)
Quarter: 2018Q3

REPORT INFORMATION
  Report Type: Report from Study
  Country: US (occurrence: US)
  Receive Date: 20180501
  Receipt Date: 20180822
  Transmission Date: 20181010
  Serious: Yes (Death, Hospitalization, Other)
  Sender: FDA-Public Use
  Company Number: US-PFIZER INC-2017376121

PATIENT
  Age: 38 Year
  Sex: Female

DRUGS (5)
  1. IBRANCE [Suspect]
     Active Substance: PALBOCICLIB
     Dosage: 75 MG, DAILY
     Route: 048
     Dates: start: 20171101, end: 20171206
  2. IBRANCE [Suspect]
     Active Substance: PALBOCICLIB
     Dosage: 100 MG, CYCLIC (DAYS 1?2 OF 28 DAYS CYCLE)
     Route: 048
     Dates: start: 201708, end: 201711
  3. FASLODEX [Concomitant]
     Active Substance: FULVESTRANT
     Indication: BREAST CANCER METASTATIC
     Dosage: UNK UNK, CYCLIC (D1, D15, D29 AND THEN MONTHLY IU)
     Dates: start: 20171109, end: 20171109
  4. IBRANCE [Suspect]
     Active Substance: PALBOCICLIB
     Indication: BREAST CANCER METASTATIC
     Dosage: 125 MG, DAILY
     Route: 048
     Dates: start: 20170825, end: 20170920
  5. IBRANCE [Suspect]
     Active Substance: PALBOCICLIB
     Dosage: 100 MG, DAILY
     Route: 048
     Dates: start: 20170921, end: 20171020

REACTIONS (13)
  - Neutropenia [Not Recovered/Not Resolved]
  - Abdominal discomfort [Unknown]
  - Death [Fatal]
  - Vomiting [Unknown]
  - Neoplasm progression [Unknown]
  - Thrombocytopenia [Unknown]
  - Hydronephrosis [Unknown]
  - Nausea [Not Recovered/Not Resolved]
  - Cytopenia [Unknown]
  - Decreased appetite [Unknown]
  - Fatigue [Unknown]
  - Platelet count decreased [Unknown]
  - Oedema peripheral [Not Recovered/Not Resolved]

NARRATIVE: CASE EVENT DATE: 2017
